FAERS Safety Report 9728007 (Version 2)
Quarter: 2014Q1

REPORT INFORMATION
  Report Type: Spontaneous
  Country: FR (occurrence: None)
  Receive Date: 20131127
  Receipt Date: 20140218
  Transmission Date: 20141002
  Serious: Yes (Hospitalization)
  Sender: FDA-Public Use
  Company Number: 2013MPI00747

PATIENT
  Age: 27 Year
  Sex: Male

DRUGS (4)
  1. ADCETRIS (BRENTUXIMAB VEDOTIN) INJECTION [Suspect]
     Indication: HODGKIN^S DISEASE
     Route: 042
     Dates: start: 20130530, end: 20130620
  2. GEMCITABINE (GEMCITABINE) [Concomitant]
  3. CAELYX  (DOXORUBICIN HYDROCHLORIDE) [Concomitant]
  4. NAVELBINE (VINORELBINE) [Concomitant]

REACTIONS (6)
  - Venoocclusive liver disease [None]
  - Hepatocellular injury [None]
  - Thrombocytopenia [None]
  - Neutropenia [None]
  - Pleural effusion [None]
  - Splenomegaly [None]
